FAERS Safety Report 25333380 (Version 2)
Quarter: 2025Q2

REPORT INFORMATION
  Report Type: Report from Study
  Country: US (occurrence: US)
  Receive Date: 20250520
  Receipt Date: 20250527
  Transmission Date: 20250716
  Serious: Yes (Other)
  Sender: ABBVIE
  Company Number: US-ABBVIE-5620326

PATIENT
  Sex: Male
  Weight: 82 kg

DRUGS (3)
  1. IMBRUVICA [Suspect]
     Active Substance: IBRUTINIB
     Indication: Chronic lymphocytic leukaemia
     Route: 048
     Dates: start: 202210, end: 202311
  2. IMBRUVICA [Suspect]
     Active Substance: IBRUTINIB
     Indication: Chronic lymphocytic leukaemia
     Route: 048
  3. CALQUENCE [Suspect]
     Active Substance: ACALABRUTINIB
     Indication: Product used for unknown indication
     Route: 065

REACTIONS (5)
  - Cataract [Unknown]
  - Drug eruption [Not Recovered/Not Resolved]
  - Drug eruption [Not Recovered/Not Resolved]
  - White blood cell count increased [Unknown]
  - White blood cell count decreased [Unknown]
